FAERS Safety Report 8588491-6 (Version None)
Quarter: 2012Q3

REPORT INFORMATION
  Report Type: 
  Country: None (occurrence: None)
  Receive Date: 20120813
  Receipt Date: 20120803
  Transmission Date: 20120928
  Serious: Yes (Other)
  Sender: FDA-Public Use
  Company Number: CA-JNJFOC-20120803745

PATIENT
  Age: 52 Year
  Sex: Male
  Weight: 92 kg

DRUGS (5)
  1. CELEXA [Concomitant]
     Route: 065
  2. REMICADE [Suspect]
     Indication: COLITIS ULCERATIVE
     Route: 042
  3. ALL OTHER THERAPEUTICS [Concomitant]
     Route: 065
  4. OXYCET [Concomitant]
     Route: 065
  5. ENTOCORT EC [Concomitant]
     Route: 065

REACTIONS (1)
  - CHEST PAIN [None]
